FAERS Safety Report 4770623-9 (Version None)
Quarter: 2005Q3

REPORT INFORMATION
  Report Type: 
  Country: None (occurrence: None)
  Receive Date: 20050914
  Receipt Date: 20050830
  Transmission Date: 20060218
  Serious: Yes (Hospitalization)
  Sender: FDA-Public Use
  Company Number: GBS050918306

PATIENT
  Age: 71 Year
  Sex: Female
  Weight: 54 kg

DRUGS (4)
  1. GEMCITABINE HYDROCHLORIDE-IV (GEMCITABINE) [Suspect]
     Indication: PANCREATIC CARCINOMA
     Dosage: 1500 MG
     Dates: start: 20050810, end: 20050810
  2. FLUCONAZOLE [Concomitant]
  3. DOMPERIDONE [Concomitant]
  4. ORALDENE (HEXETIDINE) [Concomitant]

REACTIONS (5)
  - CHEST DISCOMFORT [None]
  - DISORIENTATION [None]
  - ELECTROCARDIOGRAM ST SEGMENT ABNORMAL [None]
  - PAIN IN EXTREMITY [None]
  - SUPRAVENTRICULAR EXTRASYSTOLES [None]
